FAERS Safety Report 9298259 (Version 2)
Quarter: 2013Q3

REPORT INFORMATION
  Report Type: Report from Study
  Country: US (occurrence: US)
  Receive Date: 20130520
  Receipt Date: 20130808
  Transmission Date: 20140515
  Serious: Yes (Hospitalization)
  Sender: FDA-Public Use
  Company Number: US-ROCHE-1225552

PATIENT
  Age: 54 Year
  Sex: Female
  Weight: 48.12 kg

DRUGS (1)
  1. XELODA [Suspect]
     Indication: BREAST CANCER METASTATIC
     Route: 048
     Dates: start: 20130410, end: 20130425

REACTIONS (2)
  - Abdominal strangulated hernia [Recovering/Resolving]
  - Intestinal obstruction [Unknown]
